FAERS Safety Report 23075984 (Version 2)
Quarter: 2023Q4

REPORT INFORMATION
  Report Type: Spontaneous
  Country: CN (occurrence: CN)
  Receive Date: 20231017
  Receipt Date: 20231031
  Transmission Date: 20240109
  Serious: Yes (Other)
  Sender: FDA-Public Use
  Company Number: CN-JNJFOC-20231036727

PATIENT
  Age: 32 Year
  Sex: Male

DRUGS (1)
  1. MENS ROGAINE [Suspect]
     Active Substance: MINOXIDIL
     Indication: Product used for unknown indication
     Dosage: ONCE IN MORNING AND ONCE IN EVENING, HALF CAPFUL EVERY TIME
     Route: 065
     Dates: start: 202310

REACTIONS (7)
  - Asthenia [Recovering/Resolving]
  - Pyrexia [Recovering/Resolving]
  - Purulent discharge [Recovering/Resolving]
  - Asphyxia [Recovering/Resolving]
  - Tenderness [Recovering/Resolving]
  - Drug hypersensitivity [Recovering/Resolving]
  - Headache [Recovering/Resolving]

NARRATIVE: CASE EVENT DATE: 20231009
